FAERS Safety Report 19720414 (Version 1)
Quarter: 2021Q3

REPORT INFORMATION
  Report Type: Other
  Country: TW (occurrence: TW)
  Receive Date: 20210819
  Receipt Date: 20210819
  Transmission Date: 20211014
  Serious: Yes (Life-Threatening, Hospitalization, Other)
  Sender: FDA-Public Use
  Company Number: TW-APPCO PHARMA LLC-2115326

PATIENT
  Age: 63 Year
  Sex: Male

DRUGS (1)
  1. LABETALOL [Suspect]
     Active Substance: LABETALOL\LABETALOL HYDROCHLORIDE
     Indication: BLOOD PRESSURE SYSTOLIC INCREASED
     Route: 065

REACTIONS (1)
  - Drug ineffective [Unknown]
